FAERS Safety Report 8080210-5 (Version None)
Quarter: 2012Q1

REPORT INFORMATION
  Report Type: 
  Country: None (occurrence: None)
  Receive Date: 20120130
  Receipt Date: 20120124
  Transmission Date: 20120608
  Serious: Yes (Hospitalization)
  Sender: FDA-Public Use
  Company Number: ZA-SANOFI-AVENTIS-2012SA005261

PATIENT
  Sex: Male

DRUGS (3)
  1. APIDRA [Suspect]
     Route: 065
  2. LANTUS [Suspect]
     Route: 065
  3. APIDRA [Suspect]
     Route: 065

REACTIONS (3)
  - WRONG DRUG ADMINISTERED [None]
  - HYPOGLYCAEMIA [None]
  - MYOCARDIAL INFARCTION [None]
